FAERS Safety Report 21153423 (Version 1)
Quarter: 2022Q3

REPORT INFORMATION
  Report Type: Spontaneous
  Country: None (occurrence: US)
  Receive Date: 20220731
  Receipt Date: 20220731
  Transmission Date: 20221027
  Serious: No
  Sender: FDA-Public Use
  Company Number: US-Canton Laboratories, LLC-2131405

PATIENT

DRUGS (6)
  1. NAPROSYN [Suspect]
     Active Substance: NAPROXEN
     Indication: Product used for unknown indication
  2. PAXLOVID [Concomitant]
     Active Substance: NIRMATRELVIR\RITONAVIR
     Route: 048
     Dates: start: 20220626
  3. IBUPROFEN [Concomitant]
     Active Substance: IBUPROFEN
  4. VITAMINS [Concomitant]
     Active Substance: VITAMINS
  5. VITAMIN C [Concomitant]
     Active Substance: ASCORBIC ACID
  6. Co-Q-10 plus [Concomitant]

REACTIONS (1)
  - Unevaluable event [Unknown]
